FAERS Safety Report 7071650-1 (Version None)
Quarter: 2010Q4

REPORT INFORMATION
  Report Type: 
  Country: None (occurrence: None)
  Receive Date: 20101029
  Receipt Date: 20091109
  Transmission Date: 20110411
  Serious: No
  Sender: FDA-Public Use
  Company Number: A0809969A

PATIENT
  Age: 63 Year
  Sex: Female
  Weight: 93.2 kg

DRUGS (6)
  1. ADVAIR DISKUS 100/50 [Suspect]
     Indication: ASTHMA
     Dosage: 1PUFF TWICE PER DAY
     Route: 055
     Dates: start: 20090814, end: 20091001
  2. PRAVASTATIN [Concomitant]
  3. ALBUTEROL [Concomitant]
  4. LASIX [Concomitant]
  5. METOPROLOL [Concomitant]
  6. ENALAPRIL MALEATE [Concomitant]

REACTIONS (1)
  - HEART RATE INCREASED [None]
